FAERS Safety Report 16412181 (Version 4)
Quarter: 2019Q4

REPORT INFORMATION
  Report Type: Report from Study
  Country: US (occurrence: US)
  Receive Date: 20190610
  Receipt Date: 20191004
  Transmission Date: 20200122
  Serious: Yes (Hospitalization, Other)
  Sender: FDA-Public Use
  Company Number: US-JNJFOC-20190523665

PATIENT
  Age: 67 Year
  Sex: Male

DRUGS (16)
  1. HYDROCODONE/ACETAMINOPHEN [Concomitant]
     Active Substance: ACETAMINOPHEN\HYDROCODONE
  2. METFORMIN HCL [Concomitant]
     Active Substance: METFORMIN HYDROCHLORIDE
  3. FLOMAX [Concomitant]
     Active Substance: TAMSULOSIN HYDROCHLORIDE
  4. IMBRUVICA [Suspect]
     Active Substance: IBRUTINIB
     Dosage: 420 MG, QD
     Route: 048
  5. WARFARIN SODIUM. [Concomitant]
     Active Substance: WARFARIN SODIUM
     Dosage: UNK (MONDAYS 7 MG ONCE A DAY/TUESDAY, SUNDAY 6 MG ONCE A DAY)
  6. LORATADINE. [Concomitant]
     Active Substance: LORATADINE
  7. NORCO [Concomitant]
     Active Substance: ACETAMINOPHEN\HYDROCODONE BITARTRATE
  8. ALLERGY RELIEF                     /00072502/ [Concomitant]
  9. LOSARTAN POTASSIUM. [Concomitant]
     Active Substance: LOSARTAN POTASSIUM
  10. IMBRUVICA [Suspect]
     Active Substance: IBRUTINIB
     Indication: CHRONIC LYMPHOCYTIC LEUKAEMIA
     Dosage: 420 MG, QD
     Route: 048
     Dates: start: 20190424, end: 20190506
  11. FARXIGA [Concomitant]
     Active Substance: DAPAGLIFLOZIN PROPANEDIOL
  12. BIFIDOBACTERIUM LACTIS [Concomitant]
     Active Substance: BIFIDOBACTERIUM ANIMALIS LACTIS
     Dosage: UNK (3 BILLION ACTIVE CULTURES PER CAPSULE )
  13. ATORVASTATIN CALCIUM. [Concomitant]
     Active Substance: ATORVASTATIN CALCIUM
  14. TRAMADOL HYDROCHLORIDE. [Concomitant]
     Active Substance: TRAMADOL HYDROCHLORIDE
  15. FLONASE [Concomitant]
     Active Substance: FLUTICASONE PROPIONATE
  16. GLIMEPIRIDE. [Concomitant]
     Active Substance: GLIMEPIRIDE

REACTIONS (16)
  - Internal haemorrhage [Unknown]
  - Thinking abnormal [Not Recovered/Not Resolved]
  - Sinus disorder [Not Recovered/Not Resolved]
  - Thrombosis [Unknown]
  - Haematuria [Unknown]
  - White blood cell count increased [Recovering/Resolving]
  - Hyperhidrosis [Unknown]
  - Hypoacusis [Recovering/Resolving]
  - Immune system disorder [Unknown]
  - Increased tendency to bruise [Not Recovered/Not Resolved]
  - White blood cell count decreased [Unknown]
  - Cellulitis [Unknown]
  - Memory impairment [Unknown]
  - Therapeutic response unexpected [Unknown]
  - Prostatic operation [Unknown]
  - Pneumonia [Recovered/Resolved]

NARRATIVE: CASE EVENT DATE: 201904
